FAERS Safety Report 20634870 (Version 3)
Quarter: 2023Q4

REPORT INFORMATION
  Report Type: Report from Study
  Country: DE (occurrence: DE)
  Receive Date: 20220325
  Receipt Date: 20231206
  Transmission Date: 20240109
  Serious: Yes (Hospitalization)
  Sender: FDA-Public Use
  Company Number: DE-JNJFOC-20210635200

PATIENT
  Age: 5 Decade
  Sex: Male

DRUGS (3)
  1. SIMPONI [Suspect]
     Active Substance: GOLIMUMAB
     Indication: Axial spondyloarthritis
     Route: 058
     Dates: start: 20200914
  2. SIMPONI [Suspect]
     Active Substance: GOLIMUMAB
     Indication: Ankylosing spondylitis
  3. ACEMETACIN [Concomitant]
     Active Substance: ACEMETACIN
     Dosage: 7 DAYS OF THE WEEK
     Dates: start: 20210215, end: 20210515

REACTIONS (6)
  - Spinal osteoarthritis [Unknown]
  - Headache [Unknown]
  - Haematoma [Unknown]
  - Skin laceration [Unknown]
  - Post concussion syndrome [Unknown]
  - Fall [Unknown]

NARRATIVE: CASE EVENT DATE: 20201101
